FAERS Safety Report 24064874 (Version 2)
Quarter: 2024Q3

REPORT INFORMATION
  Report Type: Spontaneous
  Country: US (occurrence: US)
  Receive Date: 20240709
  Receipt Date: 20240710
  Transmission Date: 20241016
  Serious: Yes (Hospitalization)
  Sender: PFIZER
  Company Number: US-PFIZER INC-202400208944

PATIENT
  Age: 63 Year
  Sex: Male

DRUGS (1)
  1. VYNDAMAX [Suspect]
     Active Substance: TAFAMIDIS
     Indication: Hereditary neuropathic amyloidosis
     Dosage: UNK

REACTIONS (2)
  - Cardiac failure [Unknown]
  - Electrocardiogram ambulatory abnormal [Unknown]

NARRATIVE: CASE EVENT DATE: 20240623
